FAERS Safety Report 8588447-3 (Version None)
Quarter: 2012Q3

REPORT INFORMATION
  Report Type: 
  Country: None (occurrence: None)
  Receive Date: 20120813
  Receipt Date: 20120801
  Transmission Date: 20120928
  Serious: Yes (Hospitalization)
  Sender: FDA-Public Use
  Company Number: US-BAYER-2012-078925

PATIENT
  Age: 28 Year
  Sex: Female
  Weight: 68.254 kg

DRUGS (6)
  1. YAZ [Suspect]
     Dosage: UNK
     Dates: start: 20090923, end: 20100514
  2. LEVAQUIN [Concomitant]
     Indication: PNEUMONIA
     Dosage: 750 MG, UNK, 2-WEEK COURSE
  3. NAPROSYN [Concomitant]
     Dosage: 500 MG, PRN
  4. MULTI-VITAMINS [Concomitant]
  5. TYLENOL [Concomitant]
  6. PROTONIX [Concomitant]

REACTIONS (1)
  - PULMONARY EMBOLISM [None]
